FAERS Safety Report 9948748 (Version 1)
Quarter: 2014Q1

REPORT INFORMATION
  Report Type: Spontaneous
  Country: US (occurrence: None)
  Receive Date: 20140122
  Receipt Date: 20140122
  Transmission Date: 20141002
  Serious: Yes (Other)
  Sender: FDA-Public Use
  Company Number: AEGR000173

PATIENT
  Sex: Male
  Weight: 67.6 kg

DRUGS (6)
  1. JUXTAPID [Suspect]
     Route: 048
     Dates: start: 2013, end: 20130930
  2. DITROPAN XL OXYBUTYNIN HYDROCHLORIDE) [Concomitant]
  3. ZANTAC (RANITIDINE HYDROCHLORIDE) [Concomitant]
  4. ZOLOFT (SERTRALINE HYDROCHLORIDE) [Concomitant]
  5. PROGRAF (TACROLIMUS) [Concomitant]
  6. LEVITRA (VARDENAFIL HYDROCHLORIDE) (VARDENAFIL HYDROCHLORIDE) [Concomitant]

REACTIONS (1)
  - Hepatic enzyme increased [None]
